FAERS Safety Report 7485710-4 (Version None)
Quarter: 2011Q2

REPORT INFORMATION
  Report Type: 
  Country: None (occurrence: None)
  Receive Date: 20110517
  Receipt Date: 20110512
  Transmission Date: 20111010
  Serious: Yes (Other)
  Sender: FDA-Public Use
  Company Number: GB-MERCK-1101GBR00055

PATIENT
  Age: 24 Year
  Sex: Female

DRUGS (5)
  1. ISENTRESS [Suspect]
     Route: 048
  2. ABACAVIR SULFATE AND LAMIVUDINE [Concomitant]
     Route: 048
  3. TENOFOVIR DISOPROXIL FUMARATE [Concomitant]
     Route: 048
  4. ATAZANAVIR SULFATE [Concomitant]
     Route: 048
  5. RITONAVIR [Concomitant]
     Route: 048

REACTIONS (4)
  - PREMATURE LABOUR [None]
  - PLACENTA PRAEVIA [None]
  - PLACENTAL INSUFFICIENCY [None]
  - DRUG EXPOSURE DURING PREGNANCY [None]
